FAERS Safety Report 19088183 (Version 6)
Quarter: 2021Q3

REPORT INFORMATION
  Report Type: Report from Study
  Country: DE (occurrence: DE)
  Receive Date: 20210402
  Receipt Date: 20210920
  Transmission Date: 20211014
  Serious: Yes (Death, Other)
  Sender: FDA-Public Use
  Company Number: DE-GLAXOSMITHKLINE-DE2021GSK071857

PATIENT
  Age: 64 Year
  Sex: Female
  Weight: 89 kg

DRUGS (1)
  1. BELIMUMAB [Suspect]
     Active Substance: BELIMUMAB
     Indication: SYSTEMIC LUPUS ERYTHEMATOSUS
     Dosage: CYC

REACTIONS (1)
  - Acute right ventricular failure [Fatal]

NARRATIVE: CASE EVENT DATE: 20180224
